FAERS Safety Report 16351061 (Version 2)
Quarter: 2019Q4

REPORT INFORMATION
  Report Type: Report from Study
  Country: US (occurrence: US)
  Receive Date: 20190524
  Receipt Date: 20191025
  Transmission Date: 20200122
  Serious: Yes (Other)
  Sender: FDA-Public Use
  Company Number: US-TEVA-2019-US-1053925

PATIENT
  Age: 44 Year
  Sex: Female

DRUGS (1)
  1. COPAXONE [Suspect]
     Active Substance: GLATIRAMER ACETATE
     Indication: MULTIPLE SCLEROSIS
     Route: 058
     Dates: start: 20181110

REACTIONS (9)
  - Dizziness [Recovered/Resolved]
  - Adverse drug reaction [Recovered/Resolved]
  - Malaise [Recovered/Resolved]
  - Flushing [Unknown]
  - Cardiac flutter [Unknown]
  - Nausea [Recovered/Resolved]
  - Injection site swelling [Recovered/Resolved]
  - Injection site rash [Recovered/Resolved]
  - Immediate post-injection reaction [Unknown]

NARRATIVE: CASE EVENT DATE: 2019
